FAERS Safety Report 6765366-6 (Version None)
Quarter: 2010Q2

REPORT INFORMATION
  Report Type: 
  Country: None (occurrence: None)
  Receive Date: 20100611
  Receipt Date: 20100601
  Transmission Date: 20101027
  Serious: Yes (Hospitalization)
  Sender: FDA-Public Use
  Company Number: CA-JNJFOC-20100601669

PATIENT
  Sex: Male
  Weight: 78.5 kg

DRUGS (9)
  1. REMICADE [Suspect]
     Indication: CROHN'S DISEASE
     Route: 042
  2. IMURAN [Concomitant]
  3. PREDNISONE [Concomitant]
  4. SOTALOL [Concomitant]
  5. ALTACE [Concomitant]
  6. CITRACAL+D [Concomitant]
  7. PROSCAR [Concomitant]
  8. FLONASE [Concomitant]
  9. COUMADIN [Concomitant]

REACTIONS (3)
  - DECREASED APPETITE [None]
  - PROSTATOMEGALY [None]
  - WEIGHT DECREASED [None]
